FAERS Safety Report 19384408 (Version 1)
Quarter: 2021Q2

REPORT INFORMATION
  Report Type: Spontaneous
  Country: US (occurrence: US)
  Receive Date: 20210608
  Receipt Date: 20210608
  Transmission Date: 20210717
  Serious: No
  Sender: FDA-Public Use
  Company Number: US-SA-2021SA184782

PATIENT
  Age: 49 Year
  Sex: Female

DRUGS (1)
  1. DUPIXENT [Suspect]
     Active Substance: DUPILUMAB
     Indication: DERMATITIS ATOPIC

REACTIONS (6)
  - Initial insomnia [Unknown]
  - Dermatitis atopic [Unknown]
  - Skin burning sensation [Unknown]
  - Pruritus [Unknown]
  - Eczema [Unknown]
  - Pain of skin [Unknown]

NARRATIVE: CASE EVENT DATE: 202105
